FAERS Safety Report 20689829 (Version 1)
Quarter: 2022Q2

REPORT INFORMATION
  Report Type: Spontaneous
  Country: US (occurrence: None)
  Receive Date: 20220407
  Receipt Date: 20220407
  Transmission Date: 20220721
  Serious: Yes (Other)
  Sender: FDA-Public Use
  Company Number: None

PATIENT
  Age: 44 Year
  Sex: Female
  Weight: 79.65 kg

DRUGS (4)
  1. ELURYNG [Suspect]
     Active Substance: ETHINYL ESTRADIOL\ETONOGESTREL
     Indication: Premenstrual dysphoric disorder
     Dosage: OTHER FREQUENCY : 1 PER WEEK/3 WKS;?
     Route: 067
     Dates: start: 20210513, end: 20210617
  2. ELURYNG [Suspect]
     Active Substance: ETHINYL ESTRADIOL\ETONOGESTREL
     Indication: Intermenstrual bleeding
  3. ETHINYL ESTRADIOL\ETONOGESTREL [Suspect]
     Active Substance: ETHINYL ESTRADIOL\ETONOGESTREL
     Indication: Premenstrual dysphoric disorder
     Dosage: OTHER FREQUENCY : 1 PER WEEK/3 WKS;?
     Route: 067
     Dates: start: 20211210, end: 20220118
  4. ETHINYL ESTRADIOL\ETONOGESTREL [Suspect]
     Active Substance: ETHINYL ESTRADIOL\ETONOGESTREL
     Indication: Intermenstrual bleeding

REACTIONS (3)
  - Intermenstrual bleeding [None]
  - Muscle spasms [None]
  - Acne [None]

NARRATIVE: CASE EVENT DATE: 20210617
